FAERS Safety Report 23776591 (Version 1)
Quarter: 2024Q2

REPORT INFORMATION
  Report Type: Spontaneous
  Country: US (occurrence: US)
  Receive Date: 20240424
  Receipt Date: 20240424
  Transmission Date: 20240716
  Serious: No
  Sender: FDA-Public Use
  Company Number: US-UCBSA-2024002179

PATIENT
  Age: 52 Year
  Sex: Female
  Weight: 70.748 kg

DRUGS (1)
  1. BIMZELX [Suspect]
     Active Substance: BIMEKIZUMAB-BKZX
     Indication: Psoriasis
     Dosage: 320 MILLIGRAM, EV 4 WEEKS
     Route: 058
     Dates: start: 202312

REACTIONS (2)
  - Acne [Unknown]
  - Product availability issue [Unknown]

NARRATIVE: CASE EVENT DATE: 20240111
